FAERS Safety Report 18673318 (Version 1)
Quarter: 2020Q4

REPORT INFORMATION
  Report Type: Spontaneous
  Country: JP (occurrence: JP)
  Receive Date: 20201228
  Receipt Date: 20201228
  Transmission Date: 20210114
  Serious: Yes (Other)
  Sender: FDA-Public Use
  Company Number: JP-GILEAD-2020-0509917

PATIENT
  Age: 10 Decade
  Sex: Male

DRUGS (3)
  1. VEKLURY [Suspect]
     Active Substance: REMDESIVIR
     Indication: COVID-19
     Dosage: UNK
     Route: 041
     Dates: start: 20201210, end: 20201214
  2. DEXAMETHASONE. [Concomitant]
     Active Substance: DEXAMETHASONE
     Indication: COVID-19
     Dosage: UNK
     Route: 048
     Dates: start: 20201210, end: 20201214
  3. AVIGAN [Concomitant]
     Active Substance: FAVIPIRAVIR
     Indication: COVID-19
     Dosage: UNK
     Route: 048
     Dates: start: 20201211

REACTIONS (1)
  - Dyspnoea [Unknown]

NARRATIVE: CASE EVENT DATE: 20201221
